FAERS Safety Report 12801113 (Version 1)
Quarter: 2016Q4

REPORT INFORMATION
  Report Type: Report from Study
  Country: US (occurrence: US)
  Receive Date: 20161003
  Receipt Date: 20161003
  Transmission Date: 20170207
  Serious: Yes (Other)
  Sender: FDA-Public Use
  Company Number: US-AMGEN-USASL2016133776

PATIENT

DRUGS (1)
  1. KYPROLIS [Suspect]
     Active Substance: CARFILZOMIB
     Indication: PRODUCT USED FOR UNKNOWN INDICATION
     Dosage: UNK
     Route: 065

REACTIONS (18)
  - Neutropenia [Unknown]
  - Secondary hypertension [Unknown]
  - Chronic kidney disease [Unknown]
  - Coagulopathy [Unknown]
  - Cluster headache [Unknown]
  - Polyneuropathy [Unknown]
  - Diabetic complication [Unknown]
  - Cough [Unknown]
  - Type 2 diabetes mellitus [Unknown]
  - Sciatica [Unknown]
  - Tension headache [Unknown]
  - Constipation [Unknown]
  - Neuromyopathy [Unknown]
  - Upper respiratory tract infection [Unknown]
  - Anaemia [Unknown]
  - Depression [Unknown]
  - Tinea cruris [Unknown]
  - Back pain [Unknown]

NARRATIVE: CASE EVENT DATE: 20160223
